FAERS Safety Report 9680590 (Version 2)
Quarter: 2013Q4

REPORT INFORMATION
  Report Type: Spontaneous
  Country: US (occurrence: US)
  Receive Date: 20131111
  Receipt Date: 20131119
  Transmission Date: 20140711
  Serious: No
  Sender: FDA-Public Use
  Company Number: US-PFIZER INC-2013316737

PATIENT
  Age: 70 Year
  Sex: Male
  Weight: 70.3 kg

DRUGS (3)
  1. ADVIL [Suspect]
     Indication: ARTHRALGIA
     Dosage: UNK, ONCE A DAY
     Route: 048
     Dates: start: 20131103, end: 20131104
  2. ADVIL [Suspect]
     Dosage: UNK
     Route: 048
  3. ADVIL [Concomitant]
     Dosage: UNK

REACTIONS (6)
  - Foreign body [Unknown]
  - Dysphagia [Unknown]
  - Retching [Unknown]
  - Burning sensation [Unknown]
  - Vomiting [Unknown]
  - Product quality issue [Unknown]
